FAERS Safety Report 8592678-6 (Version None)
Quarter: 2012Q3

REPORT INFORMATION
  Report Type: 
  Country: None (occurrence: None)
  Receive Date: 20120814
  Receipt Date: 20120604
  Transmission Date: 20120928
  Serious: No
  Sender: FDA-Public Use
  Company Number: US-COVIDIEN/TYCO HEALTHCARE/MALLINCKRODT-T201202493

PATIENT
  Sex: Female

DRUGS (7)
  1. ZOFRAN [Concomitant]
     Indication: NAUSEA
     Dosage: EVERY SIX HOURS
  2. LORTAB [Concomitant]
     Indication: BREAKTHROUGH PAIN
     Dosage: 10 MG/ ?,  PRN
  3. LIDOCAIN                           /00033401/ [Concomitant]
     Indication: PAIN
     Dosage: UNK, PRN
  4. FENTANYL [Suspect]
     Indication: PAIN
     Dosage: 50 UG/HR,EVERY 72 HOURS
     Dates: start: 20120501
  5. ENDURE [Concomitant]
     Indication: CARDIAC DISORDER
     Dosage: UNK
  6. FENTANYL [Concomitant]
     Dosage: UNK
  7. INDERAL [Concomitant]
     Indication: CARDIAC DISORDER
     Dosage: UNK

REACTIONS (2)
  - DRY SKIN [None]
  - BURNING SENSATION [None]
